FAERS Safety Report 12435923 (Version 2)
Quarter: 2016Q3

REPORT INFORMATION
  Report Type: Spontaneous
  Country: US (occurrence: US)
  Receive Date: 20160604
  Receipt Date: 20160722
  Transmission Date: 20161109
  Serious: No
  Sender: FDA-Public Use
  Company Number: US-ASTRAZENECA-2016SE52564

PATIENT
  Age: 25771 Day
  Sex: Female

DRUGS (1)
  1. TUDORZA PRESSAIR [Suspect]
     Active Substance: ACLIDINIUM BROMIDE
     Indication: CHRONIC OBSTRUCTIVE PULMONARY DISEASE
     Route: 055

REACTIONS (5)
  - Drug dose omission [Recovering/Resolving]
  - Breast pain [Recovering/Resolving]
  - Product quality issue [Unknown]
  - Skin exfoliation [Not Recovered/Not Resolved]
  - Accident [Recovering/Resolving]

NARRATIVE: CASE EVENT DATE: 20160511
